FAERS Safety Report 7039150-2 (Version None)
Quarter: 2010Q4

REPORT INFORMATION
  Report Type: 
  Country: None (occurrence: None)
  Receive Date: 20101012
  Receipt Date: 20100928
  Transmission Date: 20110411
  Serious: Yes (Hospitalization, Other)
  Sender: FDA-Public Use
  Company Number: PHEH2006US15107

PATIENT
  Sex: Male

DRUGS (22)
  1. ZOMETA [Suspect]
     Indication: MULTIPLE MYELOMA
     Dates: start: 20030516
  2. AREDIA [Suspect]
  3. AUGMENTIN '125' [Concomitant]
  4. PERIDEX [Concomitant]
  5. REVLIMID [Concomitant]
  6. LYRICA [Concomitant]
  7. TYLENOL [Concomitant]
  8. DOXIL [Concomitant]
  9. VINCRISTINE [Concomitant]
  10. DEXAMETHASONE [Concomitant]
  11. MELPHALAN HYDROCHLORIDE [Concomitant]
  12. TRANSFUSIONS [Concomitant]
  13. CENTRUM [Concomitant]
  14. IRON [Concomitant]
  15. FOLIC ACID [Concomitant]
  16. CELEXA [Concomitant]
  17. ACIPHEX [Concomitant]
  18. COMPAZINE [Concomitant]
  19. DIFLUCAN [Concomitant]
  20. HYDROXYZINE [Concomitant]
  21. PERCOCET [Concomitant]
  22. ARTHROTEC [Concomitant]

REACTIONS (67)
  - ABDOMINAL PAIN [None]
  - AMNESIA [None]
  - ANXIETY [None]
  - AORTIC ARTERIOSCLEROSIS [None]
  - APLASTIC ANAEMIA [None]
  - ARTHRALGIA [None]
  - ARTHRITIS [None]
  - ASTHENIA [None]
  - ATRIOVENTRICULAR BLOCK FIRST DEGREE [None]
  - BONE DISORDER [None]
  - BRADYCARDIA [None]
  - CARDIAC MURMUR [None]
  - CARPAL TUNNEL SYNDROME [None]
  - CENTRAL VENOUS CATHETERISATION [None]
  - COLECTOMY [None]
  - COLON CANCER [None]
  - CONSTIPATION [None]
  - DECREASED APPETITE [None]
  - DECREASED INTEREST [None]
  - DENTAL FISTULA [None]
  - DIABETES MELLITUS [None]
  - DIASTOLIC DYSFUNCTION [None]
  - DIVERTICULUM [None]
  - DRY EYE [None]
  - DRY MOUTH [None]
  - ELECTROPHORESIS ABNORMAL [None]
  - EMOTIONAL DISTRESS [None]
  - ERECTILE DYSFUNCTION [None]
  - GENERAL PHYSICAL HEALTH DETERIORATION [None]
  - GLAUCOMA [None]
  - HEPATIC STEATOSIS [None]
  - HOT FLUSH [None]
  - HYPERGAMMAGLOBULINAEMIA BENIGN MONOCLONAL [None]
  - HYPOAESTHESIA [None]
  - INSOMNIA [None]
  - INTERVERTEBRAL DISC PROTRUSION [None]
  - JAW DISORDER [None]
  - LEFT ATRIAL DILATATION [None]
  - MACULOPATHY [None]
  - MITRAL VALVE INCOMPETENCE [None]
  - MULTIPLE FRACTURES [None]
  - MYALGIA [None]
  - MYELOMA RECURRENCE [None]
  - NAUSEA [None]
  - NEOPLASM MALIGNANT [None]
  - NIGHT BLINDNESS [None]
  - NORMOCHROMIC NORMOCYTIC ANAEMIA [None]
  - ORTHOSTATIC HYPOTENSION [None]
  - OSTEONECROSIS OF JAW [None]
  - PAIN [None]
  - PANCYTOPENIA [None]
  - POLLAKIURIA [None]
  - PRESYNCOPE [None]
  - PULMONARY HYPERTENSION [None]
  - RENAL FAILURE [None]
  - SPINAL COLUMN STENOSIS [None]
  - STEM CELL TRANSPLANT [None]
  - STOMATITIS [None]
  - TESTICULAR ATROPHY [None]
  - TOOTH ABSCESS [None]
  - TOOTH EXTRACTION [None]
  - TOOTH INFECTION [None]
  - TRICUSPID VALVE INCOMPETENCE [None]
  - VISION BLURRED [None]
  - VOMITING [None]
  - WEIGHT DECREASED [None]
  - WOUND TREATMENT [None]
